FAERS Safety Report 7138825-4 (Version None)
Quarter: 2010Q4

REPORT INFORMATION
  Report Type: 
  Country: None (occurrence: None)
  Receive Date: 20101206
  Receipt Date: 20101129
  Transmission Date: 20110411
  Serious: Yes (Other)
  Sender: FDA-Public Use
  Company Number: CA-ASTRAZENECA-2010SE54530

PATIENT
  Age: 4 Month
  Sex: Male

DRUGS (1)
  1. NEXIUM SACHETS [Suspect]
     Indication: REFLUX OESOPHAGITIS
     Route: 048
     Dates: start: 20101101

REACTIONS (1)
  - HYPERSOMNIA [None]
